FAERS Safety Report 14836416 (Version 1)
Quarter: 2018Q2

REPORT INFORMATION
  Report Type: Spontaneous
  Country: US (occurrence: US)
  Receive Date: 20180413
  Receipt Date: 20180413
  Transmission Date: 20180711
  Serious: Yes (Death, Life-Threatening, Hospitalization, Disabling)
  Sender: FDA-Public Use
  Company Number: None

PATIENT
  Age: 77 Year
  Sex: Female
  Weight: 51.75 kg

DRUGS (1)
  1. AMIODARONE [Suspect]
     Active Substance: AMIODARONE
     Indication: ATRIAL FIBRILLATION
     Route: 048
     Dates: start: 20161001, end: 20161213

REACTIONS (9)
  - Asthenia [None]
  - Thyroid disorder [None]
  - Toxicity to various agents [None]
  - Cardiac failure congestive [None]
  - Loss of personal independence in daily activities [None]
  - Pulmonary fibrosis [None]
  - Dyspnoea [None]
  - Visual impairment [None]
  - Pneumonia [None]

NARRATIVE: CASE EVENT DATE: 20161015
